FAERS Safety Report 6522128-2 (Version None)
Quarter: 2009Q4

REPORT INFORMATION
  Report Type: 
  Country: None (occurrence: None)
  Receive Date: 20091214
  Receipt Date: 20081020
  Transmission Date: 20100525
  Serious: Yes (Hospitalization)
  Sender: FDA-Public Use
  Company Number: 592823

PATIENT
  Age: 51 Year
  Sex: Male

DRUGS (2)
  1. PEGASYS [Suspect]
     Indication: HEPATITIS C
     Dates: start: 20080828
  2. COPEGUS [Suspect]
     Indication: HEPATITIS C
     Dates: start: 20080828

REACTIONS (4)
  - ELECTROLYTE IMBALANCE [None]
  - EYELID FUNCTION DISORDER [None]
  - PYREXIA [None]
  - VISION BLURRED [None]
